FAERS Safety Report 7285204-5 (Version None)
Quarter: 2011Q1

REPORT INFORMATION
  Report Type: 
  Country: None (occurrence: None)
  Receive Date: 20110210
  Receipt Date: 20110131
  Transmission Date: 20110831
  Serious: Yes (Hospitalization, Other)
  Sender: FDA-Public Use
  Company Number: GB-JNJFOC-20101207571

PATIENT
  Age: 55 Year
  Sex: Female

DRUGS (7)
  1. MICONAZOLE [Suspect]
     Route: 048
  2. AMILORIDE HYDROCHLORIDE [Concomitant]
  3. WARFARIN [Interacting]
     Indication: PRODUCT USED FOR UNKNOWN INDICATION
     Route: 065
  4. DIGOXIN [Concomitant]
  5. MICONAZOLE [Suspect]
     Indication: ORAL FUNGAL INFECTION
     Route: 048
  6. WARFARIN [Interacting]
     Route: 065
  7. HYDROCHLOROTHIAZIDE [Concomitant]

REACTIONS (5)
  - BLOOD BLISTER [None]
  - HOSPITALISATION [None]
  - DRUG INTERACTION [None]
  - INCREASED TENDENCY TO BRUISE [None]
  - PROTHROMBIN TIME RATIO INCREASED [None]
